FAERS Safety Report 25253792 (Version 1)
Quarter: 2025Q2

REPORT INFORMATION
  Report Type: Spontaneous
  Country: PH (occurrence: PH)
  Receive Date: 20250430
  Receipt Date: 20250430
  Transmission Date: 20250717
  Serious: Yes (Other)
  Sender: AZURITY PHARMACEUTICALS
  Company Number: PH-AZURITY PHARMACEUTICALS, INC.-AZR202504-001146

PATIENT
  Sex: Male

DRUGS (2)
  1. IVERMECTIN [Suspect]
     Active Substance: IVERMECTIN
     Indication: Product used for unknown indication
     Route: 065
  2. IVERMECTIN [Suspect]
     Active Substance: IVERMECTIN
     Route: 065

REACTIONS (3)
  - Neurotoxicity [Recovered/Resolved]
  - Overdose [Unknown]
  - Self-medication [Unknown]
